FAERS Safety Report 5409814-2 (Version None)
Quarter: 2007Q3

REPORT INFORMATION
  Report Type: 
  Country: None (occurrence: None)
  Receive Date: 20070807
  Receipt Date: 20070723
  Transmission Date: 20080115
  Serious: Yes (Other)
  Sender: FDA-Public Use
  Company Number: 2007S1002448

PATIENT
  Age: 53 Year
  Sex: Female
  Weight: 79.3795 kg

DRUGS (9)
  1. FENTANYL TRANSDERMAL SYSTEM [Suspect]
     Indication: MUSCLE SPASMS
     Dosage: 25 UG/HR; EVERY 3 DAYS; TRANSDERMAL
     Route: 062
     Dates: start: 20070314, end: 20070315
  2. FENTANYL TRANSDERMAL SYSTEM [Suspect]
     Indication: NEUROPATHY
     Dosage: 25 UG/HR; EVERY 3 DAYS; TRANSDERMAL
     Route: 062
     Dates: start: 20070314, end: 20070315
  3. FENTANYL TRANSDERMAL SYSTEM [Suspect]
     Indication: PAIN
     Dosage: 25 UG/HR; EVERY 3 DAYS; TRANSDERMAL
     Route: 062
     Dates: start: 20070314, end: 20070315
  4. CYCLOBENZAPRINE HCL [Concomitant]
  5. MONTELUKAST SODIUM [Concomitant]
  6. FLUTICASONE PROPIONATE [Concomitant]
  7. DULOXETINE HYDROCHLORIDE [Concomitant]
  8. ESTROGENS CONJUGATED [Concomitant]
  9. OMEPRAZOLE [Concomitant]

REACTIONS (1)
  - DRUG HYPERSENSITIVITY [None]
